FAERS Safety Report 21610946 (Version 2)
Quarter: 2022Q4

REPORT INFORMATION
  Report Type: Spontaneous
  Country: ES (occurrence: ES)
  Receive Date: 20221117
  Receipt Date: 20221202
  Transmission Date: 20230113
  Serious: Yes (Hospitalization)
  Sender: FDA-Public Use
  Company Number: ES-TEVA-2022-ES-2826303

PATIENT
  Age: 9 Year
  Sex: Female

DRUGS (7)
  1. FLUDARABINE [Suspect]
     Active Substance: FLUDARABINE PHOSPHATE
     Indication: Acute lymphocytic leukaemia
     Dosage: 30 MG/M2 DAILY;
     Route: 065
  2. DEXAMETHASONE [Suspect]
     Active Substance: DEXAMETHASONE
     Indication: Cytokine release syndrome
     Dosage: .6 MG/KG DAILY; ADMINISTERED ON DAYS +2 TO +14.
     Route: 065
  3. TOCILIZUMAB [Suspect]
     Active Substance: TOCILIZUMAB
     Indication: Cytokine release syndrome
     Dosage: 8 MG/KG DAILY; ADMINISTERED ON DAYS +2 TO +3.
     Route: 065
  4. SILTUXIMAB [Suspect]
     Active Substance: SILTUXIMAB
     Indication: Cytokine release syndrome
     Dosage: 11 MG/KG DAILY; ADMINISTERED ON DAY +6.
     Route: 065
  5. ANAKINRA [Suspect]
     Active Substance: ANAKINRA
     Indication: Cytokine release syndrome
     Dosage: 2 MG/KG DAILY; ADMINISTERED ON DAYS +7 TO +9.
     Route: 065
  6. CYCLOPHOSPHAMIDE [Suspect]
     Active Substance: CYCLOPHOSPHAMIDE
     Indication: Acute lymphocytic leukaemia
     Dosage: 500 MG/M2 DAILY;
     Route: 065
  7. TISAGENLECLEUCEL [Suspect]
     Active Substance: TISAGENLECLEUCEL
     Indication: Acute lymphocytic leukaemia
     Dosage: ADMINISTERED 2.4269 X 106/KG.
     Route: 050

REACTIONS (3)
  - Cytokine release syndrome [Unknown]
  - Tuberculosis [Recovering/Resolving]
  - Pneumonia [Unknown]
